FAERS Safety Report 10032624 (Version 1)
Quarter: 2014Q1

REPORT INFORMATION
  Report Type: Spontaneous
  Country: US (occurrence: US)
  Receive Date: 20140324
  Receipt Date: 20140324
  Transmission Date: 20141002
  Serious: Yes (Hospitalization)
  Sender: FDA-Public Use
  Company Number: US-GLAXOSMITHKLINE-A1066169A

PATIENT
  Sex: Female

DRUGS (3)
  1. ADVAIR HFA [Suspect]
     Indication: RESPIRATORY DISORDER
     Route: 055
     Dates: start: 20130715
  2. VENTOLIN [Suspect]
     Indication: RESPIRATORY DISORDER
     Route: 055
     Dates: start: 20130715
  3. ARIXTRA [Suspect]
     Indication: RESPIRATORY DISORDER
     Route: 065
     Dates: start: 20081219, end: 20111114

REACTIONS (1)
  - Pulmonary embolism [Unknown]
